FAERS Safety Report 7022746-1 (Version None)
Quarter: 2010Q3

REPORT INFORMATION
  Report Type: 
  Country: None (occurrence: None)
  Receive Date: 20100930
  Receipt Date: 20100927
  Transmission Date: 20110219
  Serious: Yes (Hospitalization)
  Sender: FDA-Public Use
  Company Number: A0883514A

PATIENT
  Age: 56 Year
  Sex: Female

DRUGS (17)
  1. ADVAIR DISKUS 100/50 [Suspect]
     Indication: CHRONIC OBSTRUCTIVE PULMONARY DISEASE
     Dosage: 1PUFF TWICE PER DAY
     Route: 055
     Dates: start: 20090101, end: 20100901
  2. INTAL [Concomitant]
  3. ALBUTEROL [Concomitant]
  4. GLIPIZIDE [Concomitant]
  5. METFORMIN [Concomitant]
  6. AMARYL [Concomitant]
  7. THEOPHYLLINE [Concomitant]
  8. LASIX [Concomitant]
  9. UNSPECIFIED MEDICATION [Concomitant]
  10. PREDNISONE [Concomitant]
  11. XANAX [Concomitant]
  12. ZOLOFT [Concomitant]
  13. KLOR-CON [Concomitant]
  14. PROAIR HFA [Concomitant]
  15. ASPIRIN [Concomitant]
  16. OXYGEN [Concomitant]
  17. MOUTHWASH [Concomitant]

REACTIONS (5)
  - APHAGIA [None]
  - CANDIDIASIS [None]
  - DIARRHOEA [None]
  - PNEUMONIA [None]
  - TONGUE ULCERATION [None]
